FAERS Safety Report 17092453 (Version 1)
Quarter: 2019Q4

REPORT INFORMATION
  Report Type: Spontaneous
  Country: JP (occurrence: JP)
  Receive Date: 20191129
  Receipt Date: 20191129
  Transmission Date: 20200122
  Serious: Yes (Other)
  Sender: FDA-Public Use
  Company Number: JP-ALLERGAN-1947662US

PATIENT
  Sex: Male

DRUGS (1)
  1. RISEDRONATE SODIUM - BP [Suspect]
     Active Substance: RISEDRONATE SODIUM
     Indication: PRODUCT USED FOR UNKNOWN INDICATION
     Dosage: 17.5 MG, UNK
     Route: 065

REACTIONS (4)
  - Diabetes mellitus [Unknown]
  - Complex regional pain syndrome [Unknown]
  - Myelodysplastic syndrome [Unknown]
  - White blood cell count decreased [Unknown]
